FAERS Safety Report 7334679-1 (Version None)
Quarter: 2011Q1

REPORT INFORMATION
  Report Type: 
  Country: None (occurrence: None)
  Receive Date: 20110307
  Receipt Date: 20110303
  Transmission Date: 20110831
  Serious: Yes (Death, Life-Threatening, Other)
  Sender: FDA-Public Use
  Company Number: JP-BAYER-2010-005780

PATIENT
  Sex: Male
  Weight: 58 kg

DRUGS (8)
  1. SORAFENIB (RAF KINASE INHIBITOR) [Suspect]
     Dosage: 400 MG, QD
     Route: 048
     Dates: start: 20101101, end: 20101110
  2. ACTOS [Concomitant]
     Dosage: DAILY DOSE 15 MG
     Route: 048
  3. SORAFENIB (RAF KINASE INHIBITOR) [Suspect]
     Dosage: 400 MG, QOD
     Route: 048
     Dates: start: 20101111, end: 20101129
  4. URSO 250 [Concomitant]
     Dosage: 200 MG, QD
     Route: 048
  5. SORAFENIB (RAF KINASE INHIBITOR) [Suspect]
     Indication: HEPATIC NEOPLASM MALIGNANT
     Dosage: 800 MG, QD
     Route: 048
     Dates: start: 20101021, end: 20101027
  6. AMARYL [Concomitant]
     Dosage: DAILY DOSE 1.5 MG
     Route: 048
  7. TANATRIL [Concomitant]
     Dosage: DAILY DOSE 5 MG
     Route: 048
  8. PASTARON [Concomitant]
     Indication: PROPHYLAXIS
     Dosage: UNK
     Route: 061
     Dates: start: 20101021

REACTIONS (9)
  - MALAISE [None]
  - ABDOMINAL DISTENSION [None]
  - GAMMA-GLUTAMYLTRANSFERASE INCREASED [None]
  - ASPARTATE AMINOTRANSFERASE INCREASED [None]
  - UPPER GASTROINTESTINAL HAEMORRHAGE [None]
  - HEPATIC NEOPLASM MALIGNANT [None]
  - PLATELET COUNT DECREASED [None]
  - PYREXIA [None]
  - RASH [None]
